FAERS Safety Report 9998337 (Version 3)
Quarter: 2014Q1

REPORT INFORMATION
  Report Type: Report from Study
  Country: BR (occurrence: BR)
  Receive Date: 20140312
  Receipt Date: 20140327
  Transmission Date: 20141002
  Serious: Yes (Other)
  Sender: FDA-Public Use
  Company Number: PHHY2012BR035992

PATIENT
  Age: 59 Year
  Sex: Female
  Weight: 90 kg

DRUGS (9)
  1. DIOVAN AMLO FIX [Suspect]
     Indication: HYPERTENSION
     Dosage: 1 DF (160 MG VALS/ 10 MG AMLO), DAILY
     Route: 048
     Dates: start: 2009
  2. DIOVAN AMLO FIX [Suspect]
     Dosage: 1 DF (160 MG VALS/ 10 MG AMLO), DAILY
     Route: 048
  3. HYDROCHLOROTHIAZIDE [Suspect]
     Indication: SWELLING
     Dosage: 2.5 MG, UNK
     Dates: start: 2009
  4. ATENOLOL [Suspect]
     Indication: HYPERTENSION
     Dosage: 100 MG, Q12H
     Dates: start: 2009
  5. ATENOLOL [Suspect]
     Indication: MYOCARDIAL ISCHAEMIA
  6. OMEPRAZOLE [Suspect]
     Indication: GASTROINTESTINAL DISORDER
     Dosage: 20 MG, UNK
     Dates: start: 2009
  7. SIMVASTATIN [Suspect]
     Indication: BLOOD CHOLESTEROL INCREASED
     Dosage: 20 MG, UNK
     Dates: start: 2009
  8. MONOCORDIL [Suspect]
     Indication: CHEST PAIN
     Dosage: 20 MG, UNK
  9. AAS [Suspect]
     Indication: MYOCARDIAL ISCHAEMIA
     Dosage: 100 MG, UNK
     Dates: start: 2009, end: 2012

REACTIONS (5)
  - Blood pressure increased [Unknown]
  - Gastrointestinal disorder [Unknown]
  - Abdominal pain upper [Unknown]
  - Teeth brittle [Unknown]
  - Arthralgia [Unknown]
